FAERS Safety Report 16061356 (Version 1)
Quarter: 2019Q1

REPORT INFORMATION
  Report Type: Spontaneous
  Country: US (occurrence: US)
  Receive Date: 20190211
  Receipt Date: 20190211
  Transmission Date: 20190418
  Serious: No
  Sender: FDA-Public Use
  Company Number: None

PATIENT
  Age: 78 Year
  Sex: Female
  Weight: 68.95 kg

DRUGS (1)
  1. REMICADE [Suspect]
     Active Substance: INFLIXIMAB
     Indication: RHEUMATOID ARTHRITIS
     Dosage: INFUSE 210MG INTRAVENOUSLY AT WEEK 0, 2 AND 6 AS DIRECTED
     Route: 042
     Dates: start: 201811

REACTIONS (2)
  - Cough [None]
  - Pulmonary congestion [None]
